FAERS Safety Report 19120058 (Version 1)
Quarter: 2021Q2

REPORT INFORMATION
  Report Type: Spontaneous
  Country: US (occurrence: US)
  Receive Date: 20210412
  Receipt Date: 20210412
  Transmission Date: 20210717
  Serious: No
  Sender: FDA-Public Use
  Company Number: US-GLAXOSMITHKLINE-US2021077752

PATIENT
  Sex: Female

DRUGS (1)
  1. ARNUITY ELLIPTA [Suspect]
     Active Substance: FLUTICASONE FUROATE
     Indication: PRODUCT USED FOR UNKNOWN INDICATION
     Dosage: UNK

REACTIONS (12)
  - Device use confusion [Unknown]
  - Malaise [Unknown]
  - Incorrect dose administered [Unknown]
  - Coronavirus infection [Unknown]
  - Product dose omission in error [Unknown]
  - Pneumonitis [Unknown]
  - Cough [Unknown]
  - COVID-19 immunisation [Unknown]
  - Bronchial disorder [Unknown]
  - Wrong technique in device usage process [Unknown]
  - Drug hypersensitivity [Unknown]
  - Device use issue [Unknown]
